FAERS Safety Report 16280923 (Version 1)
Quarter: 2019Q2

REPORT INFORMATION
  Report Type: Spontaneous
  Country: US (occurrence: US)
  Receive Date: 20190507
  Receipt Date: 20190507
  Transmission Date: 20190711
  Serious: Yes (Other)
  Sender: FDA-Public Use
  Company Number: US-INDIVIOR INC.-INDV-119270-2019

PATIENT
  Age: 44 Year
  Sex: Female

DRUGS (9)
  1. SUBOXONE [Suspect]
     Active Substance: BUPRENORPHINE HYDROCHLORIDE\NALOXONE HYDROCHLORIDE
     Dosage: FISRT TAKES ONE FILM  THEN LATER TAKES HALF OF THE FILM AND THEN LATER TAKES ANOTHER HALF
     Route: 060
  2. SUBOXONE [Suspect]
     Active Substance: BUPRENORPHINE HYDROCHLORIDE\NALOXONE HYDROCHLORIDE
     Dosage: 24MG, DAILY
     Route: 060
  3. ZOLOFT [Suspect]
     Active Substance: SERTRALINE HYDROCHLORIDE
     Indication: ANXIETY
     Dosage: 75 OR 100MG
     Route: 065
  4. SUBOXONE [Suspect]
     Active Substance: BUPRENORPHINE HYDROCHLORIDE\NALOXONE HYDROCHLORIDE
     Dosage: 32MG, DAILY
     Route: 060
  5. BUPRENORPHINE 8 MG TABLET [Suspect]
     Active Substance: BUPRENORPHINE HYDROCHLORIDE
     Indication: PAIN
     Dosage: 32 MILLIGRAM (ONE IN THE MORNING, ONE AT LUNCH, ONE AT 3PM AND ONE AT 6PM)
     Route: 060
  6. SUBOXONE [Suspect]
     Active Substance: BUPRENORPHINE HYDROCHLORIDE\NALOXONE HYDROCHLORIDE
     Indication: PAIN
     Dosage: 8 MILLIGRAM, BID
     Route: 060
  7. SUBOXONE [Suspect]
     Active Substance: BUPRENORPHINE HYDROCHLORIDE\NALOXONE HYDROCHLORIDE
     Indication: DEPRESSION
     Dosage: TWO 8MG FILM  SAME TIME, UNK
     Route: 060
  8. SUBOXONE [Suspect]
     Active Substance: BUPRENORPHINE HYDROCHLORIDE\NALOXONE HYDROCHLORIDE
     Dosage: 8MG, TWO TIMES DAILY
     Route: 060
  9. ZOLOFT [Suspect]
     Active Substance: SERTRALINE HYDROCHLORIDE
     Dosage: 25 MILLIGRAM, UNKNOWN
     Route: 065

REACTIONS (23)
  - Restless legs syndrome [Not Recovered/Not Resolved]
  - Drug withdrawal syndrome [Not Recovered/Not Resolved]
  - Diarrhoea [Not Recovered/Not Resolved]
  - Dental caries [Unknown]
  - Prescribed overdose [Recovered/Resolved]
  - Memory impairment [Unknown]
  - Food poisoning [Recovered/Resolved]
  - Somnolence [Unknown]
  - Tremor [Unknown]
  - Intentional overdose [Recovered/Resolved]
  - Post-traumatic stress disorder [Unknown]
  - Wrong technique in product usage process [Unknown]
  - Intentional underdose [Unknown]
  - Inappropriate schedule of product administration [Not Recovered/Not Resolved]
  - Gastroenteritis viral [Recovered/Resolved]
  - Renal failure [Not Recovered/Not Resolved]
  - Off label use [Not Recovered/Not Resolved]
  - Irritability [Not Recovered/Not Resolved]
  - Fatigue [Not Recovered/Not Resolved]
  - Anxiety [Not Recovered/Not Resolved]
  - Constipation [Recovered/Resolved]
  - Dry skin [Unknown]
  - Drug dependence [Not Recovered/Not Resolved]

NARRATIVE: CASE EVENT DATE: 201904
